FAERS Safety Report 11452969 (Version 1)
Quarter: 2015Q3

REPORT INFORMATION
  Report Type: Spontaneous
  Country: US (occurrence: US)
  Receive Date: 20150903
  Receipt Date: 20150903
  Transmission Date: 20151125
  Serious: No
  Sender: FDA-Public Use
  Company Number: US-ROCHE-1054808

PATIENT
  Sex: Male

DRUGS (8)
  1. MORPHINE [Concomitant]
     Active Substance: MORPHINE
  2. KLONOPIN [Concomitant]
     Active Substance: CLONAZEPAM
  3. VALIUM [Concomitant]
     Active Substance: DIAZEPAM
  4. PEGASYS [Suspect]
     Active Substance: PEGINTERFERON ALFA-2A
     Indication: CHRONIC HEPATITIS C
     Route: 058
     Dates: start: 20120203
  5. RIBASPHERE [Suspect]
     Active Substance: RIBAVIRIN
     Indication: CHRONIC HEPATITIS C
     Dosage: FREQUENCY: DIVIDED DOSE
     Route: 048
     Dates: start: 20120203
  6. FENTANYL. [Concomitant]
     Active Substance: FENTANYL
  7. PEGASYS [Suspect]
     Active Substance: PEGINTERFERON ALFA-2A
     Dosage: REDUCED DOSE
     Route: 058
  8. SEROQUEL [Concomitant]
     Active Substance: QUETIAPINE FUMARATE

REACTIONS (5)
  - Injection site reaction [Unknown]
  - Platelet count decreased [Unknown]
  - Mood swings [Unknown]
  - White blood cell count decreased [Recovered/Resolved]
  - Irritability [Unknown]
